FAERS Safety Report 13276877 (Version 1)
Quarter: 2017Q1

REPORT INFORMATION
  Report Type: Spontaneous
  Country: FR (occurrence: FR)
  Receive Date: 20170228
  Receipt Date: 20170228
  Transmission Date: 20170428
  Serious: Yes (Death, Hospitalization, Disabling, Other)
  Sender: FDA-Public Use
  Company Number: FR-009507513-1702FRA008654

PATIENT
  Age: 78 Year
  Sex: Female

DRUGS (6)
  1. DIPROSTENE [Suspect]
     Active Substance: BETAMETHASONE DIPROPIONATE\BETAMETHASONE SODIUM PHOSPHATE
     Indication: BACK PAIN
     Dosage: UNK
     Route: 014
     Dates: start: 20140310, end: 20140310
  2. CALCIDOSE [Concomitant]
     Active Substance: CALCIUM CARBONATE
  3. PROLIA [Suspect]
     Active Substance: DENOSUMAB
     Indication: OSTEOPOROTIC FRACTURE
     Dosage: 60 MG, UNK
     Route: 058
     Dates: start: 20140310, end: 20140310
  4. CALDINE [Concomitant]
     Active Substance: LACIDIPINE
  5. LIPANTHYL [Concomitant]
     Active Substance: FENOFIBRATE
  6. PRETERAX (INDAPAMIDE (+) PERINDOPRIL ERBUMINE) [Concomitant]

REACTIONS (12)
  - Fall [Fatal]
  - Dyskinesia [Fatal]
  - Muscle rigidity [Unknown]
  - Amyotrophic lateral sclerosis [Fatal]
  - Muscular weakness [Unknown]
  - Extrapyramidal disorder [Fatal]
  - Balance disorder [Fatal]
  - Facial bones fracture [Recovered/Resolved]
  - Dysarthria [Fatal]
  - Muscular weakness [Fatal]
  - Wrist fracture [Recovered/Resolved]
  - Coma [Unknown]

NARRATIVE: CASE EVENT DATE: 20140325
